FAERS Safety Report 25400072 (Version 6)
Quarter: 2025Q3

REPORT INFORMATION
  Report Type: Report from Study
  Country: GB (occurrence: GB)
  Receive Date: 20250605
  Receipt Date: 20250807
  Transmission Date: 20251021
  Serious: Yes (Death, Other)
  Sender: TAKEDA
  Company Number: GB-TAKEDA-2025TUS052085

PATIENT
  Sex: Female

DRUGS (2)
  1. FRUQUINTINIB [Suspect]
     Active Substance: FRUQUINTINIB
     Indication: Colon cancer
  2. FRUQUINTINIB [Suspect]
     Active Substance: FRUQUINTINIB
     Indication: Metastases to liver

REACTIONS (5)
  - Colon cancer [Fatal]
  - Metastases to liver [Fatal]
  - Nausea [Recovered/Resolved]
  - Fatigue [Unknown]
  - Jaundice [Unknown]

NARRATIVE: CASE EVENT DATE: 20250522
